FAERS Safety Report 5047060-5 (Version None)
Quarter: 2006Q3

REPORT INFORMATION
  Report Type: 
  Country: None (occurrence: None)
  Receive Date: 20060710
  Receipt Date: 20060628
  Transmission Date: 20061208
  Serious: Yes (Disabling)
  Sender: FDA-Public Use
  Company Number: CA-ROCHE-453566

PATIENT
  Sex: Female

DRUGS (2)
  1. ACCUTANE [Suspect]
     Indication: ACNE
     Dosage: THE PATIENT RECEIVED ONE 40MG CAPSULE ONCE PER DAY, AND TWO 10MG CAPSULES ONCE PER DAY.
     Route: 048
     Dates: start: 20030613, end: 20030702
  2. ACCUTANE [Suspect]
     Route: 048
     Dates: start: 20030702, end: 20031115

REACTIONS (12)
  - ACNE [None]
  - AGEUSIA [None]
  - ANOSMIA [None]
  - ASTHENIA [None]
  - DEPRESSION [None]
  - DRUG INEFFECTIVE [None]
  - DRY EYE [None]
  - DRY SKIN [None]
  - IRRITABILITY [None]
  - NASAL DRYNESS [None]
  - NASOPHARYNGITIS [None]
  - SENSORY DISTURBANCE [None]
